FAERS Safety Report 4446249-3 (Version None)
Quarter: 2004Q3

REPORT INFORMATION
  Report Type: 
  Country: None (occurrence: None)
  Receive Date: 20040902
  Receipt Date: 20040818
  Transmission Date: 20050211
  Serious: No
  Sender: FDA-Public Use
  Company Number: A02200402535

PATIENT
  Age: 81 Year
  Sex: Female

DRUGS (2)
  1. MYTELASE [Suspect]
     Indication: MYASTHENIC SYNDROME
     Dosage: 10 MG } QID
     Route: 048
     Dates: start: 20040601
  2. DOLIPRANE (PARACETAMOL) [Concomitant]

REACTIONS (1)
  - NEUTROPENIA [None]
